FAERS Safety Report 11020756 (Version 1)
Quarter: 2015Q2

REPORT INFORMATION
  Report Type: Report from Study
  Country: US (occurrence: US)
  Receive Date: 20150413
  Receipt Date: 20150413
  Transmission Date: 20150821
  Serious: Yes (Other)
  Sender: FDA-Public Use
  Company Number: US-BIOGENIDEC-2015BI047453

PATIENT
  Sex: Female

DRUGS (1)
  1. AVONEX [Suspect]
     Active Substance: INTERFERON BETA-1A
     Indication: MULTIPLE SCLEROSIS
     Route: 030
     Dates: start: 20071220

REACTIONS (6)
  - Gait disturbance [Not Recovered/Not Resolved]
  - Injury associated with device [Recovered/Resolved]
  - Cognitive disorder [Not Recovered/Not Resolved]
  - Coordination abnormal [Not Recovered/Not Resolved]
  - Femur fracture [Not Recovered/Not Resolved]
  - Memory impairment [Not Recovered/Not Resolved]
